FAERS Safety Report 18930406 (Version 3)
Quarter: 2021Q2

REPORT INFORMATION
  Report Type: Report from Study
  Country: IT (occurrence: IT)
  Receive Date: 20210224
  Receipt Date: 20210623
  Transmission Date: 20210717
  Serious: Yes (Other)
  Sender: FDA-Public Use
  Company Number: IT-CELLTRION INC.-2021IT002172

PATIENT

DRUGS (16)
  1. PACLITAXEL. [Suspect]
     Active Substance: PACLITAXEL
     Indication: BREAST CANCER
     Dosage: 124.8 MG, EVERY 1 WEEK
     Route: 042
     Dates: start: 20190503, end: 20190628
  2. RAMIPRIL. [Concomitant]
     Active Substance: RAMIPRIL
     Dosage: UNK
     Dates: start: 20191211
  3. TRAVOPROST. [Concomitant]
     Active Substance: TRAVOPROST
  4. PALBOCICLIB [Suspect]
     Active Substance: PALBOCICLIB
     Dosage: 100 MG, EVERY 1 DAY (DAILY FOR 21 DAYS AND ONE WEEK STOP)
     Route: 048
     Dates: start: 20191010
  5. PERTUZUMAB. [Suspect]
     Active Substance: PERTUZUMAB
     Indication: BREAST CANCER
     Dosage: 840 MG, EVERY 1 DAY
     Route: 042
     Dates: start: 20190215, end: 20190215
  6. LETROZOLE. [Suspect]
     Active Substance: LETROZOLE
     Indication: BREAST CANCER
     Dosage: 2.5 MG, EVERY 1 DAY
     Route: 048
     Dates: start: 20190731
  7. TRASTUZUMAB (UNKNOWN) [Suspect]
     Active Substance: TRASTUZUMAB
     Indication: BREAST CANCER
     Dosage: 440 MG, EVERY 3 WEEKS
     Route: 042
     Dates: start: 20190215, end: 20190215
  8. PALBOCICLIB [Suspect]
     Active Substance: PALBOCICLIB
     Indication: BREAST CANCER
     Dosage: 125 MG, EVERY 1 DAY (DAILY FOR 21 DAYS AND ONE WEEK STOP)
     Route: 048
     Dates: start: 20190731, end: 20191003
  9. NEO EMOCICATROL [Concomitant]
     Dosage: UNK
     Dates: start: 20190307
  10. PANTOPRAZOLE [Concomitant]
     Active Substance: PANTOPRAZOLE
     Dosage: UNK
     Dates: start: 20190404
  11. DESAMETASONE [Concomitant]
     Active Substance: DEXAMETHASONE
     Dosage: UNK
     Dates: start: 20190731
  12. CHLORPHENAMINE MALEATE [Concomitant]
     Active Substance: CHLORPHENIRAMINE MALEATE
     Dosage: UNK
     Dates: start: 20190731
  13. TRASTUZUMAB (UNKNOWN) [Suspect]
     Active Substance: TRASTUZUMAB
     Indication: BREAST CANCER METASTATIC
     Dosage: 330 MG, EVERY 3 WEEKS
     Route: 042
     Dates: start: 20190315
  14. PERTUZUMAB. [Suspect]
     Active Substance: PERTUZUMAB
     Dosage: 420 MG, EVERY 3 WEEKS (DOSAGE TEXT: ONGOING)
     Route: 042
     Dates: start: 20190315
  15. COLECALCIFEROL [Concomitant]
     Active Substance: CHOLECALCIFEROL
  16. LEVOTIROXINA [Concomitant]
     Dosage: UNK

REACTIONS (2)
  - Neutropenia [Recovered/Resolved with Sequelae]
  - Off label use [Unknown]

NARRATIVE: CASE EVENT DATE: 20190821
